FAERS Safety Report 8295283-4 (Version None)
Quarter: 2012Q2

REPORT INFORMATION
  Report Type: 
  Country: None (occurrence: None)
  Receive Date: 20120418
  Receipt Date: 20120409
  Transmission Date: 20120825
  Serious: Yes (Other)
  Sender: FDA-Public Use
  Company Number: US-ASTRAZENECA-2010SE50138

PATIENT
  Age: 46 Year
  Sex: Female

DRUGS (3)
  1. ATACAND [Suspect]
     Route: 048
  2. NEXIUM [Suspect]
     Dosage: DAILY
     Route: 048
  3. NEXIUM [Suspect]
     Dosage: TWICE A DAY
     Route: 048

REACTIONS (9)
  - HAEMATEMESIS [None]
  - DYSPEPSIA [None]
  - DRUG INEFFECTIVE [None]
  - THERAPEUTIC RESPONSE DECREASED [None]
  - HYPERTENSION [None]
  - VOMITING [None]
  - INTENTIONAL DRUG MISUSE [None]
  - OFF LABEL USE [None]
  - ULCER HAEMORRHAGE [None]
